FAERS Safety Report 12845681 (Version 2)
Quarter: 2016Q4

REPORT INFORMATION
  Report Type: Spontaneous
  Country: DE (occurrence: DE)
  Receive Date: 20161013
  Receipt Date: 20161103
  Transmission Date: 20170207
  Serious: Yes (Hospitalization)
  Sender: FDA-Public Use
  Company Number: GXKR2016DE004718

PATIENT
  Age: 53 Year
  Sex: Female

DRUGS (1)
  1. BUDES N [Suspect]
     Active Substance: BUDESONIDE
     Indication: BRONCHIAL HYPERREACTIVITY
     Dosage: 0.2 MG, BID
     Route: 055

REACTIONS (4)
  - Swollen tongue [Recovered/Resolved]
  - Stomatitis [Recovered/Resolved]
  - Urticaria [Recovered/Resolved]
  - Angioedema [Recovered/Resolved]

NARRATIVE: CASE EVENT DATE: 20160901
